FAERS Safety Report 16070586 (Version 1)
Quarter: 2019Q2

REPORT INFORMATION
  Report Type: Spontaneous
  Country: US (occurrence: US)
  Receive Date: 20190313
  Receipt Date: 20190313
  Transmission Date: 20190711
  Serious: Yes (Other)
  Sender: FDA-Public Use
  Company Number: None

PATIENT
  Age: 71 Year
  Sex: Female
  Weight: 63 kg

DRUGS (2)
  1. COLCHICINE 0.6 MG TABLETS [Suspect]
     Active Substance: COLCHICINE
     Indication: CALCINOSIS
     Dosage: ?          QUANTITY:60 TABLET(S);?
     Route: 048
     Dates: start: 20190309, end: 20190310
  2. COLCHICINE 0.6 MG TABLETS [Suspect]
     Active Substance: COLCHICINE
     Indication: OSTEOARTHRITIS
     Dosage: ?          QUANTITY:60 TABLET(S);?
     Route: 048
     Dates: start: 20190309, end: 20190310

REACTIONS (4)
  - Product substitution issue [None]
  - Gluten sensitivity [None]
  - Insurance issue [None]
  - Dyspepsia [None]

NARRATIVE: CASE EVENT DATE: 20190313
